FAERS Safety Report 9994767 (Version 1)
Quarter: 2014Q1

REPORT INFORMATION
  Report Type: Spontaneous
  Country: US (occurrence: None)
  Receive Date: 20140307
  Receipt Date: 20140307
  Transmission Date: 20141002
  Serious: Yes (Hospitalization, Other)
  Sender: FDA-Public Use
  Company Number: None

PATIENT
  Age: 32 Year
  Sex: Female
  Weight: 65 kg

DRUGS (1)
  1. PARAGARD [Suspect]
     Indication: CONTRACEPTION
     Dates: start: 2008

REACTIONS (6)
  - Vaginal haemorrhage [None]
  - Nausea [None]
  - Fatigue [None]
  - Abortion induced [None]
  - Pregnancy with contraceptive device [None]
  - Maternal drugs affecting foetus [None]
